FAERS Safety Report 19442610 (Version 1)
Quarter: 2021Q2

REPORT INFORMATION
  Report Type: Spontaneous
  Country: US (occurrence: US)
  Receive Date: 20210621
  Receipt Date: 20210621
  Transmission Date: 20210717
  Serious: No
  Sender: FDA-Public Use
  Company Number: US-PFIZER INC-2021291394

PATIENT
  Age: 74 Year
  Sex: Female
  Weight: 49.44 kg

DRUGS (1)
  1. ATORVASTATIN CALCIUM. [Suspect]
     Active Substance: ATORVASTATIN CALCIUM
     Indication: BLOOD CHOLESTEROL
     Dosage: 25 MG, 1X/DAY (TAKE ONCE DAILY AT NIGHT TIME)
     Dates: start: 2016

REACTIONS (2)
  - Discomfort [Unknown]
  - Product use issue [Unknown]
